FAERS Safety Report 17577742 (Version 1)
Quarter: 2020Q1

REPORT INFORMATION
  Report Type: Spontaneous
  Country: US (occurrence: US)
  Receive Date: 20200319
  Receipt Date: 20200319
  Transmission Date: 20200409
  Serious: Yes (Hospitalization)
  Sender: FDA-Public Use
  Company Number: None

PATIENT
  Age: 64 Year
  Sex: Male

DRUGS (2)
  1. RIVAROXABAN (RIVAROXABAN 20MG TAB) [Suspect]
     Active Substance: RIVAROXABAN
     Route: 048
  2. ASPIRIN (ASPIRIN 325MG TAB) [Suspect]
     Active Substance: ASPIRIN
     Route: 048

REACTIONS (6)
  - Anaemia [None]
  - Gastrointestinal haemorrhage [None]
  - Gingival bleeding [None]
  - Rectal haemorrhage [None]
  - Gastritis erosive [None]
  - Melaena [None]

NARRATIVE: CASE EVENT DATE: 20191227
